FAERS Safety Report 7681435-0 (Version None)
Quarter: 2011Q3

REPORT INFORMATION
  Report Type: 
  Country: None (occurrence: None)
  Receive Date: 20110812
  Receipt Date: 20110805
  Transmission Date: 20111222
  Serious: Yes (Life-Threatening)
  Sender: FDA-Public Use
  Company Number: US-ROCHE-795945

PATIENT
  Age: 53 Year
  Sex: Male
  Weight: 109.8 kg

DRUGS (6)
  1. VICTRELIS [Suspect]
     Route: 048
     Dates: start: 20100901
  2. PEGINTERFERON ALFA-2A [Suspect]
     Route: 058
     Dates: start: 20100901
  3. PEGINTERFERON ALFA-2A [Suspect]
     Dosage: DOSE 150 UG/0.5 ML
     Route: 058
     Dates: start: 20100405, end: 20100813
  4. VICTRELIS [Suspect]
     Route: 048
     Dates: start: 20100430, end: 20100816
  5. RIBAVIRIN [Suspect]
     Route: 048
     Dates: start: 20100406, end: 20100816
  6. RIBAVIRIN [Suspect]
     Route: 048
     Dates: start: 20100901

REACTIONS (1)
  - HEPATIC NEOPLASM MALIGNANT [None]
